FAERS Safety Report 23234452 (Version 1)
Quarter: 2023Q4

REPORT INFORMATION
  Report Type: Spontaneous
  Country: US (occurrence: None)
  Receive Date: 20231127
  Receipt Date: 20231127
  Transmission Date: 20240110
  Serious: Yes (Hospitalization)
  Sender: FDA-Public Use
  Company Number: None

PATIENT
  Age: 54 Year
  Sex: Female

DRUGS (19)
  1. TACROLIMUS [Suspect]
     Active Substance: TACROLIMUS
     Indication: Lung transplant
     Dosage: OTHER QUANTITY : 1.5MG AM 2MG PM;?FREQUENCY : TWICE A DAY;?
     Route: 048
     Dates: start: 20220107
  2. MYCOPHENOLIC ACID [Suspect]
     Active Substance: MYCOPHENOLIC ACID
     Indication: Lung transplant
     Dosage: FREQUENCY : TWICE A DAY;?
     Route: 048
     Dates: start: 20220107
  3. PREDNISONE [Concomitant]
  4. oyster calcium [Concomitant]
  5. LATANOPROST [Concomitant]
     Active Substance: LATANOPROST
  6. AZITHROMYCIN [Concomitant]
  7. JANUVIA [Concomitant]
     Active Substance: SITAGLIPTIN PHOSPHATE
  8. sumatripatan [Concomitant]
  9. MYCOPHENOLIC ACID [Concomitant]
     Active Substance: MYCOPHENOLIC ACID
  10. DAPSONE [Concomitant]
  11. OMEPRAZOLE [Concomitant]
  12. VITAMIN D3 [Concomitant]
     Active Substance: CHOLECALCIFEROL
  13. MAGNESIUM OXIDE [Concomitant]
     Active Substance: MAGNESIUM OXIDE
  14. ALENDRONATE [Concomitant]
  15. ALBUTEROL SULFATE [Concomitant]
     Active Substance: ALBUTEROL SULFATE
  16. FAMOTIDINE [Concomitant]
     Active Substance: FAMOTIDINE
  17. FLUCONAZOLE [Concomitant]
  18. VALGANCICLOVIR [Concomitant]
     Active Substance: VALGANCICLOVIR
  19. CARVEDILOL [Concomitant]
     Active Substance: CARVEDILOL

REACTIONS (1)
  - Respiratory syncytial virus infection [None]

NARRATIVE: CASE EVENT DATE: 20231125
